FAERS Safety Report 6401860-5 (Version None)
Quarter: 2009Q4

REPORT INFORMATION
  Report Type: 
  Country: None (occurrence: None)
  Receive Date: 20091015
  Receipt Date: 20091005
  Transmission Date: 20100525
  Serious: No
  Sender: FDA-Public Use
  Company Number: US-ELI_LILLY_AND_COMPANY-US200908002669

PATIENT
  Sex: Female

DRUGS (6)
  1. CYMBALTA [Suspect]
     Indication: GENERALISED ANXIETY DISORDER
     Dosage: 60 MG, UNK
     Dates: start: 20090418, end: 20090627
  2. WARFARIN SODIUM [Concomitant]
  3. SEROQUEL [Concomitant]
     Dosage: 300 MG, EACH EVENING
  4. LORAZEPAM [Concomitant]
     Dosage: 1 D/F, AS NEEDED
  5. DEPAKOTE [Concomitant]
     Dosage: 250 MG, 2/D
  6. MIRTAZAPINE [Concomitant]
     Dosage: 150 MG, EACH EVENING

REACTIONS (1)
  - INTERNATIONAL NORMALISED RATIO INCREASED [None]
